FAERS Safety Report 4322957-X (Version None)
Quarter: 2004Q1

REPORT INFORMATION
  Report Type: 
  Country: None (occurrence: None)
  Receive Date: 20040322
  Receipt Date: 20040310
  Transmission Date: 20041129
  Serious: Yes (Life-Threatening, Hospitalization, Other)
  Sender: FDA-Public Use
  Company Number: 2004-03-0500

PATIENT
  Age: 19 Year
  Sex: Male
  Weight: 74.8435 kg

DRUGS (1)
  1. CLARITIN-D 24 HOUR [Suspect]
     Indication: SINUS DISORDER
     Dosage: 1 TAB ORAL
     Route: 048
     Dates: start: 20040306, end: 20040306

REACTIONS (1)
  - MYOCARDIAL INFARCTION [None]
